FAERS Safety Report 12482671 (Version 2)
Quarter: 2016Q3

REPORT INFORMATION
  Report Type: Spontaneous
  Country: JP (occurrence: JP)
  Receive Date: 20160620
  Receipt Date: 20160705
  Transmission Date: 20161109
  Serious: Yes (Other)
  Sender: FDA-Public Use
  Company Number: JP-SA-2016SA112331

PATIENT
  Sex: Female

DRUGS (2)
  1. MYSLEE [Suspect]
     Active Substance: ZOLPIDEM TARTRATE
     Route: 048
     Dates: start: 201606, end: 201606
  2. DEPAS [Suspect]
     Active Substance: ETIZOLAM
     Route: 048

REACTIONS (2)
  - Emergency care [Unknown]
  - Overdose [Unknown]

NARRATIVE: CASE EVENT DATE: 201606
